FAERS Safety Report 15386351 (Version 2)
Quarter: 2019Q4

REPORT INFORMATION
  Report Type: Spontaneous
  Country: US (occurrence: US)
  Receive Date: 20180914
  Receipt Date: 20191203
  Transmission Date: 20200122
  Serious: Yes (Hospitalization)
  Sender: FDA-Public Use
  Company Number: PHHY2018US095265

PATIENT
  Age: 58 Year
  Sex: Female

DRUGS (4)
  1. MESALAMINE. [Suspect]
     Active Substance: MESALAMINE
     Indication: CROHN^S DISEASE
     Route: 065
  2. INFLIXIMAB [Suspect]
     Active Substance: INFLIXIMAB
     Indication: CROHN^S DISEASE
     Route: 065
  3. BUDESONIDE. [Suspect]
     Active Substance: BUDESONIDE
     Indication: CROHN^S DISEASE
     Route: 065
  4. AZATHIOPRINE. [Suspect]
     Active Substance: AZATHIOPRINE
     Indication: CROHN^S DISEASE
     Route: 065

REACTIONS (21)
  - Oedema [Unknown]
  - Adrenal haemorrhage [Unknown]
  - Sepsis [Unknown]
  - Leukocytosis [Unknown]
  - Intestinal obstruction [Unknown]
  - Clostridium difficile colitis [Unknown]
  - Acute kidney injury [Unknown]
  - Product use in unapproved indication [Unknown]
  - Lactic acidosis [Unknown]
  - Abdominal pain lower [Unknown]
  - Pulmonary haemorrhage [Unknown]
  - Pneumonia [Unknown]
  - Acute respiratory distress syndrome [Unknown]
  - Pancytopenia [Unknown]
  - Cytomegalovirus colitis [Unknown]
  - Ulcer [Unknown]
  - Cytomegalovirus infection [Unknown]
  - Pain [Unknown]
  - Pseudomembranous colitis [Unknown]
  - Haematochezia [Unknown]
  - Nocardiosis [Unknown]
